FAERS Safety Report 11952339 (Version 3)
Quarter: 2016Q3

REPORT INFORMATION
  Report Type: Spontaneous
  Country: CA (occurrence: CA)
  Receive Date: 20160126
  Receipt Date: 20160902
  Transmission Date: 20161109
  Serious: Yes (Life-Threatening, Hospitalization)
  Sender: FDA-Public Use
  Company Number: CA-ROCHE-1700114

PATIENT
  Age: 73 Year
  Sex: Female

DRUGS (30)
  1. HERCEPTIN [Suspect]
     Active Substance: TRASTUZUMAB
     Indication: BREAST CANCER
     Dosage: THERAPY DURATION: 1 DAY
     Route: 042
  2. HERCEPTIN [Suspect]
     Active Substance: TRASTUZUMAB
     Dosage: THERAPY DURATION: 1 DAY
     Route: 042
  3. PERJETA [Suspect]
     Active Substance: PERTUZUMAB
     Dosage: THERAPY DURATION: 1 DAY
     Route: 042
  4. PERJETA [Suspect]
     Active Substance: PERTUZUMAB
     Dosage: THERAPY DURATION: 1 DAY
     Route: 042
  5. DECADRON [Concomitant]
     Active Substance: DEXAMETHASONE
     Route: 065
  6. K-DUR [Concomitant]
     Active Substance: POTASSIUM CHLORIDE
  7. MAGNESIUM GLUCEPTATE [Concomitant]
     Active Substance: MAGNESIUM GLUCEPTATE
     Route: 048
  8. MAGNESIUM GLUCONATE [Concomitant]
     Active Substance: MAGNESIUM GLUCONATE
  9. HERCEPTIN [Suspect]
     Active Substance: TRASTUZUMAB
     Dosage: THERAPY DURATION: 1 DAY
     Route: 042
  10. PERJETA [Suspect]
     Active Substance: PERTUZUMAB
     Route: 042
  11. CARBOPLATIN. [Suspect]
     Active Substance: CARBOPLATIN
     Dosage: THERAPY DURATION: 1 DAY
     Route: 042
  12. CARBOPLATIN. [Suspect]
     Active Substance: CARBOPLATIN
     Dosage: THERAPY DURATION: 1 DAY
     Route: 042
  13. DOCETAXEL. [Suspect]
     Active Substance: DOCETAXEL
     Indication: BREAST CANCER
     Route: 042
  14. GRAVOL [Concomitant]
     Active Substance: DIMENHYDRINATE
  15. HUMULIN R [Concomitant]
     Active Substance: INSULIN HUMAN
  16. SODIUM BICARBONATE. [Concomitant]
     Active Substance: SODIUM BICARBONATE
  17. ROSUVASTATIN. [Concomitant]
     Active Substance: ROSUVASTATIN
  18. CARBOPLATIN. [Suspect]
     Active Substance: CARBOPLATIN
     Indication: BREAST CANCER
     Dosage: THERAPY DURATION: 1 DAY
     Route: 042
  19. ANCEF [Concomitant]
     Active Substance: CEFAZOLIN SODIUM
     Route: 065
  20. BENADRYL [Concomitant]
     Active Substance: DIPHENHYDRAMINE HYDROCHLORIDE
     Route: 065
  21. KYTRIL [Concomitant]
     Active Substance: GRANISETRON HYDROCHLORIDE
     Route: 065
  22. CEFADROXIL. [Concomitant]
     Active Substance: CEFADROXIL
  23. METFORMIN [Concomitant]
     Active Substance: METFORMIN HYDROCHLORIDE
  24. HERCEPTIN [Suspect]
     Active Substance: TRASTUZUMAB
     Dosage: THERAPY DURATION: 1 DAY
     Route: 042
  25. DOCETAXEL. [Suspect]
     Active Substance: DOCETAXEL
     Route: 042
  26. PERJETA [Suspect]
     Active Substance: PERTUZUMAB
     Indication: BREAST CANCER
     Dosage: THERAPY DURATION: 1 DAY
     Route: 042
  27. COVERSYL [Concomitant]
     Active Substance: PERINDOPRIL
  28. HEPARIN SODIUM. [Concomitant]
     Active Substance: HEPARIN SODIUM
     Route: 065
  29. NEXIUM [Concomitant]
     Active Substance: ESOMEPRAZOLE MAGNESIUM
  30. POTASSIUM CHLORIDE. [Concomitant]
     Active Substance: POTASSIUM CHLORIDE

REACTIONS (4)
  - Clostridium difficile infection [Recovered/Resolved]
  - Enterocolitis infectious [Recovered/Resolved]
  - Diarrhoea [Recovered/Resolved]
  - Cellulitis [Recovered/Resolved]
